FAERS Safety Report 5257312-1 (Version None)
Quarter: 2007Q1

REPORT INFORMATION
  Report Type: 
  Country: None (occurrence: None)
  Receive Date: 20061220
  Receipt Date: 20061011
  Transmission Date: 20070707
  Serious: No
  Sender: FDA-Public Use
  Company Number: 2006RL000362

PATIENT
  Age: 68 Year
  Sex: Female

DRUGS (3)
  1. OMACOR [Suspect]
     Indication: DRUG USE FOR UNKNOWN INDICATION
     Dosage: 1 GM; X1; PO
     Route: 048
     Dates: start: 20061001, end: 20061001
  2. ZETIA [Concomitant]
  3. METFORMIN HCL [Concomitant]

REACTIONS (1)
  - PRURITUS GENERALISED [None]
